FAERS Safety Report 20802018 (Version 2)
Quarter: 2022Q4

REPORT INFORMATION
  Report Type: Report from Study
  Country: US (occurrence: US)
  Receive Date: 20220509
  Receipt Date: 20221111
  Transmission Date: 20230113
  Serious: Yes (Other)
  Sender: FDA-Public Use
  Company Number: US-HORIZON THERAPEUTICS-HZN-2022-003259

PATIENT

DRUGS (1)
  1. PENNSAID [Suspect]
     Active Substance: DICLOFENAC SODIUM
     Indication: Osteoarthritis
     Dosage: 2 DOSAGE FORM (40 MG), BID
     Route: 061
     Dates: start: 20201207

REACTIONS (6)
  - Autoimmune disorder [Unknown]
  - Pain [Unknown]
  - Cerebral disorder [Unknown]
  - Asthma [Unknown]
  - Illness [Unknown]
  - Gait disturbance [Unknown]
